FAERS Safety Report 12353816 (Version 1)
Quarter: 2016Q2

REPORT INFORMATION
  Report Type: Report from Study
  Country: US (occurrence: US)
  Receive Date: 20160511
  Receipt Date: 20160511
  Transmission Date: 20160815
  Serious: Yes (Other)
  Sender: FDA-Public Use
  Company Number: US-AMGEN-USASL2016057400

PATIENT
  Age: 46 Year
  Sex: Female

DRUGS (1)
  1. ENBREL [Suspect]
     Active Substance: ETANERCEPT
     Indication: PRODUCT USED FOR UNKNOWN INDICATION
     Dosage: UNK
     Route: 065

REACTIONS (8)
  - Abasia [Unknown]
  - Arthropathy [Unknown]
  - Drain placement [Unknown]
  - Injection site pain [Unknown]
  - Ankylosing spondylitis [Unknown]
  - Neck surgery [Unknown]
  - Condition aggravated [Unknown]
  - Arthritis [Unknown]
